FAERS Safety Report 25386187 (Version 1)
Quarter: 2025Q2

REPORT INFORMATION
  Report Type: Report from Study
  Country: US (occurrence: US)
  Receive Date: 20250602
  Receipt Date: 20250602
  Transmission Date: 20250716
  Serious: Yes (Death, Other)
  Sender: BOEHRINGER INGELHEIM
  Company Number: US-BoehringerIngelheim-2023-BI-217153

PATIENT
  Age: 80 Year
  Sex: Male

DRUGS (8)
  1. OFEV [Suspect]
     Active Substance: NINTEDANIB
     Indication: Idiopathic pulmonary fibrosis
     Dates: start: 20230125, end: 20230222
  2. OFEV [Suspect]
     Active Substance: NINTEDANIB
     Dates: start: 20230223
  3. OFEV [Suspect]
     Active Substance: NINTEDANIB
     Dates: start: 20241003, end: 20250515
  4. PANTOPRAZOLE 40 MG DELAYED RELEASE TABLET [Concomitant]
     Indication: Product used for unknown indication
     Dosage: DELAYED RELEASE TABLET
  5. ALLEGRA [Concomitant]
     Active Substance: FEXOFENADINE HYDROCHLORIDE
     Indication: Product used for unknown indication
  6. mucinex 600 mg tablet [Concomitant]
     Indication: Product used for unknown indication
     Dosage: EXTENDED-RELEASE TABLET
  7. CIALIS [Concomitant]
     Active Substance: TADALAFIL
  8. PREDNISONE [Concomitant]
     Active Substance: PREDNISONE
     Indication: Product used for unknown indication

REACTIONS (18)
  - Death [Fatal]
  - Idiopathic pulmonary fibrosis [Not Recovered/Not Resolved]
  - Decreased appetite [Recovering/Resolving]
  - Nasal congestion [Recovering/Resolving]
  - Diarrhoea [Recovered/Resolved]
  - Weight decreased [Not Recovered/Not Resolved]
  - Oxygen saturation decreased [Recovering/Resolving]
  - Contusion [Not Recovered/Not Resolved]
  - Humidity intolerance [Not Recovered/Not Resolved]
  - Constipation [Recovered/Resolved with Sequelae]
  - Blood glucose fluctuation [Recovered/Resolved with Sequelae]
  - Glycosylated haemoglobin increased [Not Recovered/Not Resolved]
  - Diarrhoea [Recovered/Resolved with Sequelae]
  - Heart rate increased [Recovered/Resolved]
  - Dyspnoea [Not Recovered/Not Resolved]
  - Seasonal allergy [Unknown]
  - Respiratory fume inhalation disorder [Unknown]
  - Muscle atrophy [Unknown]

NARRATIVE: CASE EVENT DATE: 20230101
